FAERS Safety Report 11210557 (Version 3)
Quarter: 2015Q4

REPORT INFORMATION
  Report Type: Spontaneous
  Country: US (occurrence: US)
  Receive Date: 20150622
  Receipt Date: 20151029
  Transmission Date: 20160304
  Serious: Yes (Death, Hospitalization, Other)
  Sender: FDA-Public Use
  Company Number: US-ASTELLAS-2015US016460

PATIENT
  Age: 85 Year
  Sex: Male

DRUGS (5)
  1. PRAZOSIN [Concomitant]
     Active Substance: PRAZOSIN
     Indication: BLOOD PRESSURE MEASUREMENT
     Route: 048
  2. VESICARE [Suspect]
     Active Substance: SOLIFENACIN SUCCINATE
     Indication: URINARY RETENTION
     Route: 048
     Dates: start: 201505, end: 201505
  3. VESICARE [Suspect]
     Active Substance: SOLIFENACIN SUCCINATE
     Indication: PROSTATOMEGALY
  4. AMITRIPTYLINE [Concomitant]
     Active Substance: AMITRIPTYLINE
     Indication: PAIN
     Route: 048
  5. LISINOPRIL. [Concomitant]
     Active Substance: LISINOPRIL
     Indication: BLOOD PRESSURE MEASUREMENT
     Route: 048

REACTIONS (15)
  - Weight decreased [Unknown]
  - Bladder pain [Recovered/Resolved]
  - Initial insomnia [Recovered/Resolved]
  - Malaise [Unknown]
  - Death [Fatal]
  - Hospitalisation [Unknown]
  - Diarrhoea [Recovered/Resolved]
  - Overdose [Unknown]
  - Dry mouth [Unknown]
  - Eructation [Unknown]
  - Insomnia [Unknown]
  - Nausea [Unknown]
  - Off label use [Unknown]
  - Urinary retention [Not Recovered/Not Resolved]
  - Sinus disorder [Unknown]

NARRATIVE: CASE EVENT DATE: 201505
